FAERS Safety Report 13517345 (Version 10)
Quarter: 2018Q2

REPORT INFORMATION
  Report Type: Report from Study
  Country: US (occurrence: US)
  Receive Date: 20170505
  Receipt Date: 20180420
  Transmission Date: 20180711
  Serious: Yes (Other)
  Sender: FDA-Public Use
  Company Number: US-PFIZER INC-2017172779

PATIENT
  Age: 51 Year
  Sex: Female

DRUGS (2)
  1. IBRANCE [Suspect]
     Active Substance: PALBOCICLIB
     Indication: BREAST CANCER
     Dosage: 125 MG, CYCLIC (ONCE DAILY FOR 21 DAYS ON THEN 7 DAYS OFF)
     Route: 048
  2. IBRANCE [Suspect]
     Active Substance: PALBOCICLIB
     Dosage: 125 MG, DAILY
     Route: 048

REACTIONS (18)
  - Contrast media reaction [Unknown]
  - Abdominal discomfort [Recovering/Resolving]
  - Dysgeusia [Unknown]
  - Tumour marker increased [Unknown]
  - Hot flush [Unknown]
  - Decreased appetite [Unknown]
  - Dyspepsia [Unknown]
  - Syncope [Unknown]
  - Hyperkalaemia [Unknown]
  - Hypernatraemia [Unknown]
  - Abdominal pain [Unknown]
  - Bone marrow failure [Unknown]
  - Ear pain [Unknown]
  - Tinnitus [Unknown]
  - Fatigue [Recovering/Resolving]
  - Ear discomfort [Unknown]
  - Neoplasm progression [Unknown]
  - White blood cell count decreased [Unknown]

NARRATIVE: CASE EVENT DATE: 2017
